FAERS Safety Report 6649816-1 (Version None)
Quarter: 2010Q1

REPORT INFORMATION
  Report Type: 
  Country: None (occurrence: None)
  Receive Date: 20100325
  Receipt Date: 20100310
  Transmission Date: 20100710
  Serious: Yes (Other)
  Sender: FDA-Public Use
  Company Number: IT-MYLANLABS-2010S1003976

PATIENT
  Age: 46 Year
  Sex: Female

DRUGS (7)
  1. METHADONE [Suspect]
     Indication: PAIN
     Dosage: 12 MG/DAY
     Route: 042
  2. METHADONE [Suspect]
     Dosage: 30 MG/DAY
     Route: 042
  3. FENTANYL [Suspect]
     Indication: BREAKTHROUGH PAIN
     Dosage: 400 MICROG
     Route: 048
  4. FENTANYL [Suspect]
     Dosage: 800 MICROG
     Route: 048
  5. BUPRENORPHINE [Concomitant]
     Dosage: 70 MICROG/HOUR
     Route: 062
  6. GRANISETRON [Concomitant]
     Indication: SUPPORTIVE CARE
     Route: 042
  7. FUROSEMIDE [Concomitant]
     Indication: SUPPORTIVE CARE
     Route: 042

REACTIONS (3)
  - CONFUSIONAL STATE [None]
  - MYOCLONUS [None]
  - SOMNOLENCE [None]
